FAERS Safety Report 5305487-8 (Version None)
Quarter: 2007Q2

REPORT INFORMATION
  Report Type: 
  Country: None (occurrence: None)
  Receive Date: 20070424
  Receipt Date: 20070129
  Transmission Date: 20071010
  Serious: No
  Sender: FDA-Public Use
  Company Number: 2007US01184

PATIENT
  Sex: Female

DRUGS (1)
  1. SEREVENT [Suspect]

REACTIONS (1)
  - HEART RATE INCREASED [None]
